FAERS Safety Report 10214123 (Version 1)
Quarter: 2014Q2

REPORT INFORMATION
  Report Type: Report from Study
  Country: US (occurrence: US)
  Receive Date: 20140603
  Receipt Date: 20140603
  Transmission Date: 20141212
  Serious: Yes (Hospitalization, Other)
  Sender: FDA-Public Use
  Company Number: US-TEVA-485155USA

PATIENT
  Age: 43 Year
  Sex: Male

DRUGS (1)
  1. COPAXONE [Suspect]
     Indication: MULTIPLE SCLEROSIS
     Dates: start: 20121130, end: 20140425

REACTIONS (4)
  - Chest discomfort [Not Recovered/Not Resolved]
  - Flushing [Unknown]
  - Immediate post-injection reaction [Unknown]
  - Blood pressure increased [Unknown]
